FAERS Safety Report 22321192 (Version 1)
Quarter: 2023Q2

REPORT INFORMATION
  Report Type: Other
  Country: None (occurrence: IT)
  Receive Date: 20230515
  Receipt Date: 20230515
  Transmission Date: 20230721
  Serious: Yes (Hospitalization)
  Sender: FDA-Public Use
  Company Number: IT-Misemer Pharmaceutical, Inc.-2141475

PATIENT
  Age: 12 Year
  Sex: Female
  Weight: 45.455 kg

DRUGS (1)
  1. KETOPROFEN [Suspect]
     Active Substance: KETOPROFEN
     Indication: Product used for unknown indication

REACTIONS (1)
  - Obstruction gastric [Recovered/Resolved]
